FAERS Safety Report 6940148-0 (Version None)
Quarter: 2010Q3

REPORT INFORMATION
  Report Type: 
  Country: None (occurrence: None)
  Receive Date: 20100825
  Receipt Date: 20100818
  Transmission Date: 20110219
  Serious: Yes (Other)
  Sender: FDA-Public Use
  Company Number: US-NOVOPROD-313448

PATIENT
  Age: 50 Year
  Sex: Male
  Weight: 131.52 kg

DRUGS (2)
  1. NOVOLIN 70/30 [Suspect]
     Indication: TYPE 2 DIABETES MELLITUS
     Dosage: 60 IU, QD
     Route: 058
     Dates: start: 20071220
  2. NOVOLOG [Concomitant]
     Indication: TYPE 2 DIABETES MELLITUS
     Dosage: UNKNOWN
     Route: 058

REACTIONS (3)
  - BLOOD GLUCOSE INCREASED [None]
  - INCORRECT STORAGE OF DRUG [None]
  - TRANSIENT ISCHAEMIC ATTACK [None]
